FAERS Safety Report 11996242 (Version 3)
Quarter: 2016Q4

REPORT INFORMATION
  Report Type: Spontaneous
  Country: JP (occurrence: JP)
  Receive Date: 20160203
  Receipt Date: 20161107
  Transmission Date: 20170206
  Serious: Yes (Death, Other)
  Sender: FDA-Public Use
  Company Number: JP-009507513-1601JPN011564

PATIENT
  Age: 81 Year
  Sex: Female
  Weight: 40 kg

DRUGS (10)
  1. CANCIDAS [Suspect]
     Active Substance: CASPOFUNGIN ACETATE
     Indication: SYSTEMIC CANDIDA
     Dosage: 50 MG, QD
     Route: 041
     Dates: start: 20151219, end: 20151220
  2. RANITIDINE HYDROCHLORIDE. [Concomitant]
     Active Substance: RANITIDINE HYDROCHLORIDE
     Indication: GASTRIC ULCER HAEMORRHAGE
     Dosage: 200 MG, QD
     Route: 051
     Dates: start: 20151208, end: 20151221
  3. LASIX [Concomitant]
     Active Substance: FUROSEMIDE
     Indication: ACUTE KIDNEY INJURY
     Dosage: 20 ML, TID
     Route: 051
     Dates: start: 20151205, end: 20151221
  4. ELNEOPA NO. 2 [Concomitant]
     Active Substance: UNSPECIFIED INGREDIENT
     Indication: PARENTERAL NUTRITION
     Dosage: 1.5 L, QD
     Route: 051
     Dates: start: 20151211, end: 20151221
  5. MINOCYCLINE HYDROCHLORIDE. [Concomitant]
     Active Substance: MINOCYCLINE HYDROCHLORIDE
     Indication: PNEUMONIA
     Dosage: 100 MG, BID
     Route: 051
     Dates: start: 20151218, end: 20151221
  6. MIDAZOLAM [Concomitant]
     Active Substance: MIDAZOLAM\MIDAZOLAM HYDROCHLORIDE
     Indication: SEDATIVE THERAPY
     Dosage: 24 ML, QD
     Route: 051
     Dates: start: 20151207, end: 20151221
  7. CANCIDAS [Suspect]
     Active Substance: CASPOFUNGIN ACETATE
     Indication: SYSTEMIC CANDIDA
     Dosage: 70 MG, ONCE
     Route: 041
     Dates: start: 20151218, end: 20151218
  8. INOVAN (DOPAMINE HYDROCHLORIDE) [Concomitant]
     Active Substance: DOPAMINE HYDROCHLORIDE
     Indication: HYPOTENSION
     Dosage: 96 ML, QD
     Route: 051
     Dates: start: 20151208, end: 20151221
  9. FOY [Concomitant]
     Active Substance: GABEXATE MESYLATE
     Indication: DISSEMINATED INTRAVASCULAR COAGULATION
     Dosage: 499.2 ML, QD
     Route: 051
     Dates: start: 20151208, end: 20151221
  10. PANTHENOL [Concomitant]
     Active Substance: PANTHENOL
     Indication: ILEUS PARALYTIC
     Dosage: 200 MG, QD
     Route: 051
     Dates: start: 20151218, end: 20151221

REACTIONS (3)
  - Respiratory failure [Fatal]
  - Pneumonia bacterial [Fatal]
  - Pneumonia [Fatal]

NARRATIVE: CASE EVENT DATE: 201512
